FAERS Safety Report 4747071-0 (Version None)
Quarter: 2005Q3

REPORT INFORMATION
  Report Type: 
  Country: None (occurrence: None)
  Receive Date: 20050815
  Receipt Date: 20050802
  Transmission Date: 20060218
  Serious: Yes (Other)
  Sender: FDA-Public Use
  Company Number: WAES 0508USA01334

PATIENT
  Sex: Male

DRUGS (1)
  1. INDOCIN I.V. [Suspect]
     Indication: PROPHYLAXIS
     Dosage: 0.1 MG/KG/DAILY IV
     Route: 042

REACTIONS (14)
  - GASTROINTESTINAL HAEMORRHAGE [None]
  - HAEMORRHAGIC DIATHESIS [None]
  - HYPERBILIRUBINAEMIA NEONATAL [None]
  - HYPERKALAEMIA [None]
  - HYPERNATRAEMIA [None]
  - INTRAVENTRICULAR HAEMORRHAGE NEONATAL [None]
  - METABOLIC ACIDOSIS [None]
  - NEONATAL DISORDER [None]
  - NEONATAL RESPIRATORY DISTRESS SYNDROME [None]
  - PATENT DUCTUS ARTERIOSUS [None]
  - PLATELET COUNT DECREASED [None]
  - PULMONARY HAEMORRHAGE [None]
  - SKIN ULCER [None]
  - WHITE BLOOD CELL COUNT DECREASED [None]
